FAERS Safety Report 21861975 (Version 1)
Quarter: 2023Q1

REPORT INFORMATION
  Report Type: Report from Study
  Country: CA (occurrence: CA)
  Receive Date: 20230113
  Receipt Date: 20230113
  Transmission Date: 20230418
  Serious: Yes (Other)
  Sender: FDA-Public Use
  Company Number: CA-GILEAD-2022-0587092

PATIENT
  Age: 46 Year
  Sex: Female

DRUGS (8)
  1. SACITUZUMAB GOVITECAN-HZIY [Suspect]
     Active Substance: SACITUZUMAB GOVITECAN-HZIY
     Indication: Triple negative breast cancer
     Dosage: CYCLE 5, DAY 1
     Route: 042
     Dates: start: 20220616, end: 20221229
  2. SACITUZUMAB GOVITECAN-HZIY [Suspect]
     Active Substance: SACITUZUMAB GOVITECAN-HZIY
     Dosage: CYCLE 1, DAYS 1 AND 8
     Route: 042
     Dates: start: 20220316, end: 20220323
  3. SACITUZUMAB GOVITECAN-HZIY [Suspect]
     Active Substance: SACITUZUMAB GOVITECAN-HZIY
     Dosage: CYCLE 2, DAYS 1 AND 8
     Route: 042
     Dates: start: 20220405, end: 20220412
  4. SACITUZUMAB GOVITECAN-HZIY [Suspect]
     Active Substance: SACITUZUMAB GOVITECAN-HZIY
     Dosage: CYCLE 3, DAYS 1 AND 8
     Route: 042
     Dates: start: 20220504, end: 20220510
  5. SACITUZUMAB GOVITECAN-HZIY [Suspect]
     Active Substance: SACITUZUMAB GOVITECAN-HZIY
     Dosage: CYCLE 4, DAYS 1 AND 8
     Route: 042
     Dates: start: 20220521, end: 20220602
  6. SACITUZUMAB GOVITECAN-HZIY [Suspect]
     Active Substance: SACITUZUMAB GOVITECAN-HZIY
     Dosage: 410 MG
     Route: 042
     Dates: start: 20220715, end: 20221229
  7. GEMCITABINE [Concomitant]
     Active Substance: GEMCITABINE
  8. PACLITAXEL [Concomitant]
     Active Substance: PACLITAXEL

REACTIONS (8)
  - Disease progression [Unknown]
  - Weight fluctuation [Not Recovered/Not Resolved]
  - Arthritis [Not Recovered/Not Resolved]
  - Full blood count decreased [Unknown]
  - Illness [Unknown]
  - Off label use [Not Recovered/Not Resolved]
  - Product dose omission issue [Unknown]
  - Inappropriate schedule of product administration [Unknown]

NARRATIVE: CASE EVENT DATE: 20221006
